FAERS Safety Report 14910532 (Version 2)
Quarter: 2018Q2

REPORT INFORMATION
  Report Type: Spontaneous
  Country: DE (occurrence: DE)
  Receive Date: 20180517
  Receipt Date: 20180604
  Transmission Date: 20180711
  Serious: Yes (Disabling)
  Sender: FDA-Public Use
  Company Number: DE-ASCEND THERAPEUTICS-2048018

PATIENT
  Age: 81 Year
  Sex: Female

DRUGS (10)
  1. ESTROGEL [Suspect]
     Active Substance: ESTRADIOL
     Indication: MENOPAUSAL SYMPTOMS
     Route: 062
     Dates: start: 201403
  2. VIMPAN 200 (LACOSAMIDE) [Concomitant]
     Route: 048
     Dates: start: 1999
  3. ATORVASTATIN (ATORVASTATIN) [Concomitant]
     Active Substance: ATORVASTATIN
     Route: 048
  4. BUDENOFALK 3 (BUDESONIDE) [Concomitant]
     Route: 048
  5. GYNOKADIN DOSIERGEL (ESTRADIOL HEMIHYDRATE) [Suspect]
     Active Substance: ESTRADIOL HEMIHYDRATE
     Route: 062
     Dates: start: 20180404
  6. CONCOR 5 (BISOPROLOL FUMARATE) [Concomitant]
     Route: 048
  7. BUDENOFALK 3 (BUDESONIDE) [Concomitant]
     Route: 048
  8. ASPIRIN 100 (ACETYLSALICYLIC ACID) [Concomitant]
     Route: 048
  9. UTROGESTAN [Suspect]
     Active Substance: PROGESTERONE
     Dates: start: 201403
  10. CITALOPRAM (CITALOPRAM) [Concomitant]
     Active Substance: CITALOPRAM HYDROBROMIDE
     Route: 048

REACTIONS (1)
  - Pain in extremity [Not Recovered/Not Resolved]

NARRATIVE: CASE EVENT DATE: 201703
